FAERS Safety Report 6334805-7 (Version None)
Quarter: 2009Q4

REPORT INFORMATION
  Report Type: 
  Country: None (occurrence: None)
  Receive Date: 20090826
  Receipt Date: 20090811
  Transmission Date: 20100525
  Serious: Yes (Hospitalization)
  Sender: FDA-Public Use
  Company Number: AUR-APL-2009-00391

PATIENT
  Age: 76 Year
  Sex: Male

DRUGS (2)
  1. SIMVASTATIN [Suspect]
     Dosage: 40MG, DAILY, UNK
  2. CPH 82 (STUDY DRUG) [Suspect]
     Dosage: 100-200MG ALT.DAILY,UNK

REACTIONS (8)
  - ASTHENIA [None]
  - BLOOD CREATINE PHOSPHOKINASE [None]
  - FALL [None]
  - FRACTURE [None]
  - HYPOALBUMINAEMIA [None]
  - MUSCLE CONTRACTIONS INVOLUNTARY [None]
  - PERIPHERAL SENSORY NEUROPATHY [None]
  - WEIGHT BEARING DIFFICULTY [None]
